FAERS Safety Report 23707893 (Version 2)
Quarter: 2024Q2

REPORT INFORMATION
  Report Type: Spontaneous
  Country: ES (occurrence: ES)
  Receive Date: 20240404
  Receipt Date: 20240412
  Transmission Date: 20240716
  Serious: Yes (Other)
  Sender: FDA-Public Use
  Company Number: ES-002147023-NVSC2024ES071688

PATIENT
  Age: 52 Year
  Sex: Female

DRUGS (2)
  1. RIBOCICLIB [Suspect]
     Active Substance: RIBOCICLIB
     Indication: Invasive ductal breast carcinoma
     Dosage: 600 MG (DAY 1?21  EVERY 28  DAYS)
     Route: 065
     Dates: start: 202212
  2. LETROZOLE [Concomitant]
     Active Substance: LETROZOLE
     Indication: Invasive ductal breast carcinoma
     Dosage: UNK
     Route: 065
     Dates: start: 202212

REACTIONS (3)
  - Toxic skin eruption [Unknown]
  - Eczema [Not Recovered/Not Resolved]
  - Superficial inflammatory dermatosis [Not Recovered/Not Resolved]

NARRATIVE: CASE EVENT DATE: 20230401
